FAERS Safety Report 4978243-8 (Version None)
Quarter: 2006Q2

REPORT INFORMATION
  Report Type: 
  Country: None (occurrence: None)
  Receive Date: 20060420
  Receipt Date: 20060308
  Transmission Date: 20061013
  Serious: Yes (Hospitalization, Other)
  Sender: FDA-Public Use
  Company Number: PHEH2006US03132

PATIENT
  Sex: Female

DRUGS (3)
  1. SEROQUEL [Concomitant]
     Indication: BIPOLAR I DISORDER
  2. TRILEPTAL [Suspect]
     Indication: BIPOLAR I DISORDER
     Dosage: 600 MG, BID
     Dates: start: 20040101
  3. TRILEPTAL [Suspect]
     Dosage: 300 MG, BID

REACTIONS (16)
  - AMNESIA [None]
  - BIPOLAR I DISORDER [None]
  - COGWHEEL RIGIDITY [None]
  - COORDINATION ABNORMAL [None]
  - DYSKINESIA [None]
  - FOOT OPERATION [None]
  - GUILLAIN-BARRE SYNDROME [None]
  - HYPOAESTHESIA [None]
  - INFLUENZA LIKE ILLNESS [None]
  - LOCKED-IN SYNDROME [None]
  - MUSCLE SPASMS [None]
  - MUSCULAR WEAKNESS [None]
  - MYALGIA [None]
  - NEUROPATHY [None]
  - PERONEAL NERVE PALSY [None]
  - TOE DEFORMITY [None]
